FAERS Safety Report 8002172-9 (Version None)
Quarter: 2011Q4

REPORT INFORMATION
  Report Type: 
  Country: None (occurrence: None)
  Receive Date: 20111220
  Receipt Date: 20111206
  Transmission Date: 20120403
  Serious: Yes (Hospitalization)
  Sender: FDA-Public Use
  Company Number: 2011HGS-002919

PATIENT
  Age: 46 Year
  Sex: Female
  Weight: 72.5755 kg

DRUGS (9)
  1. ASPIRIN [Concomitant]
  2. MAGNESIUM SUPPLEMENT (MAGNESIUM) [Concomitant]
  3. MULTIVITAMIN (MULTIVITAMIN ^LAPPE^) [Concomitant]
  4. CYCLOPHOSPHAMIDE [Concomitant]
  5. LEVOXYL [Concomitant]
  6. MEDROL [Concomitant]
  7. CALCIUM WITH VITAMIN D (CALCIUM WITH VITAMIN D) (ERGOCALCIFEROL, CALCI [Concomitant]
  8. BENLYSTA [Suspect]
     Indication: SYSTEMIC LUPUS ERYTHEMATOSUS
     Dosage: 10 MG/KG, 1 IN 28 D, INTRAVENOUS
     Route: 042
     Dates: start: 20110727
  9. ASCORBIC ACID [Concomitant]

REACTIONS (5)
  - UTERINE LEIOMYOMA [None]
  - DYSPNOEA [None]
  - VAGINAL HAEMORRHAGE [None]
  - ERYTHEMA [None]
  - PRURITUS [None]
